FAERS Safety Report 17721436 (Version 2)
Quarter: 2020Q3

REPORT INFORMATION
  Report Type: Spontaneous
  Country: MX (occurrence: MX)
  Receive Date: 20200429
  Receipt Date: 20200701
  Transmission Date: 20201102
  Serious: Yes (Hospitalization, Other)
  Sender: FDA-Public Use
  Company Number: MX-BRISTOL-MYERS SQUIBB COMPANY-BMS-2020-034456

PATIENT
  Age: 42 Year
  Sex: Male

DRUGS (3)
  1. NIVOLUMAB [Suspect]
     Active Substance: NIVOLUMAB
     Indication: RENAL CANCER METASTATIC
     Dosage: COMBINATION THERAY
     Route: 065
     Dates: start: 201909
  2. IPILIMUMAB [Suspect]
     Active Substance: IPILIMUMAB
     Indication: RENAL CANCER METASTATIC
     Dosage: COMBINATION THERAPY
     Route: 065
     Dates: start: 201909
  3. NIVOLUMAB [Suspect]
     Active Substance: NIVOLUMAB
     Dosage: MONOTHERAPY (EVERY 2WEEKS)
     Route: 065

REACTIONS (2)
  - Diabetic ketoacidosis [Unknown]
  - Hyperglycaemia [Unknown]
